FAERS Safety Report 5344090-0 (Version None)
Quarter: 2007Q2

REPORT INFORMATION
  Report Type: 
  Country: None (occurrence: None)
  Receive Date: 20070604
  Receipt Date: 20070524
  Transmission Date: 20071010
  Serious: Yes (Hospitalization)
  Sender: FDA-Public Use
  Company Number: B0472278A

PATIENT
  Age: 80 Year
  Sex: Female

DRUGS (4)
  1. AVANDAMET [Suspect]
     Route: 048
     Dates: start: 20051215
  2. AVANDIA [Suspect]
     Route: 065
  3. DIAMICRON [Concomitant]
     Route: 065
  4. METFORMIN HCL [Concomitant]
     Route: 065

REACTIONS (2)
  - METASTASES TO LIVER [None]
  - NEOPLASM MALIGNANT [None]
